FAERS Safety Report 5708168-1 (Version None)
Quarter: 2008Q2

REPORT INFORMATION
  Report Type: 
  Country: None (occurrence: None)
  Receive Date: 20080417
  Receipt Date: 20080404
  Transmission Date: 20081010
  Serious: Yes (Death, Hospitalization)
  Sender: FDA-Public Use
  Company Number: B0515723A

PATIENT
  Age: 55 Year
  Sex: Male

DRUGS (16)
  1. AUGMENTIN '125' [Suspect]
     Indication: DRUG USE FOR UNKNOWN INDICATION
     Dosage: 1G THREE TIMES PER DAY
     Route: 048
     Dates: start: 20070619, end: 20070619
  2. DAFALGAN [Concomitant]
     Indication: CANCER PAIN
     Dosage: 1G FOUR TIMES PER DAY
     Route: 048
     Dates: start: 20070614, end: 20070619
  3. PERFALGAN [Concomitant]
     Indication: CANCER PAIN
     Dosage: 1G FOUR TIMES PER DAY
     Route: 042
     Dates: start: 20070619, end: 20070624
  4. CONTRAMAL [Concomitant]
     Indication: CANCER PAIN
     Route: 048
     Dates: start: 20070614, end: 20070622
  5. ACTISKENAN [Concomitant]
     Indication: CANCER PAIN
     Route: 048
     Dates: end: 20070614
  6. LOVENOX [Concomitant]
     Indication: DRUG USE FOR UNKNOWN INDICATION
     Route: 058
     Dates: start: 20070612, end: 20070620
  7. INIPOMP [Concomitant]
     Indication: DRUG USE FOR UNKNOWN INDICATION
     Dosage: 40MG PER DAY
     Route: 048
     Dates: end: 20070623
  8. KARDEGIC [Concomitant]
     Indication: DRUG USE FOR UNKNOWN INDICATION
     Dosage: 75MG PER DAY
     Route: 048
     Dates: end: 20070625
  9. SECALIP [Concomitant]
     Route: 048
     Dates: end: 20070622
  10. RIVOTRIL [Concomitant]
     Indication: DRUG USE FOR UNKNOWN INDICATION
     Dosage: 13DROP PER DAY
     Route: 048
     Dates: end: 20070625
  11. BRICANYL [Concomitant]
     Indication: DRUG USE FOR UNKNOWN INDICATION
     Route: 055
     Dates: start: 20070615, end: 20070625
  12. ATROVENT [Concomitant]
     Indication: DRUG USE FOR UNKNOWN INDICATION
     Route: 055
     Dates: start: 20070615, end: 20070625
  13. ACUPAN [Concomitant]
     Indication: PAIN
     Route: 065
  14. DURAGESIC-100 [Concomitant]
     Indication: PAIN
     Route: 065
  15. OFLOCET [Concomitant]
     Indication: DRUG USE FOR UNKNOWN INDICATION
     Route: 065
     Dates: start: 20070619
  16. MORPHINE [Concomitant]
     Indication: PAIN
     Route: 042
     Dates: start: 20070614, end: 20070625

REACTIONS (8)
  - BRONCHIAL FISTULA [None]
  - BRONCHIAL OBSTRUCTION [None]
  - HAEMOPTYSIS [None]
  - HYPERSENSITIVITY [None]
  - PAIN [None]
  - PRURIGO [None]
  - PULMONARY NECROSIS [None]
  - TACHYCARDIA [None]
